FAERS Safety Report 4707620-5 (Version None)
Quarter: 2005Q3

REPORT INFORMATION
  Report Type: 
  Country: None (occurrence: None)
  Receive Date: 20050706
  Receipt Date: 20050628
  Transmission Date: 20060218
  Serious: Yes (Other)
  Sender: FDA-Public Use
  Company Number: HK-MERCK-0506USA03882

PATIENT
  Age: 20 Year
  Sex: Male

DRUGS (5)
  1. DECADRON [Suspect]
     Indication: ACUTE LYMPHOCYTIC LEUKAEMIA
     Route: 048
  2. VINCRISTINE SULFATE [Suspect]
     Indication: ACUTE LYMPHOCYTIC LEUKAEMIA
     Route: 065
  3. CYCLOPHOSPHAMIDE [Suspect]
     Indication: ACUTE LYMPHOCYTIC LEUKAEMIA
     Route: 065
  4. ADRIAMYCIN RDF [Suspect]
     Indication: ACUTE LYMPHOCYTIC LEUKAEMIA
     Route: 065
  5. ITRACONAZOLE [Suspect]
     Indication: INFECTION PROPHYLAXIS
     Route: 065

REACTIONS (12)
  - ABSCESS [None]
  - COLLAPSE OF LUNG [None]
  - FUNGAL INFECTION [None]
  - INFECTION IN AN IMMUNOCOMPROMISED HOST [None]
  - ISCHAEMIC HEPATITIS [None]
  - NEUTROPENIA [None]
  - OBSTRUCTIVE AIRWAYS DISORDER [None]
  - PERITONSILLAR ABSCESS [None]
  - RENAL FAILURE ACUTE [None]
  - STRIDOR [None]
  - SWELLING FACE [None]
  - TRACHEOBRONCHITIS [None]
